FAERS Safety Report 20330749 (Version 1)
Quarter: 2022Q1

REPORT INFORMATION
  Report Type: Spontaneous
  Country: JP (occurrence: JP)
  Receive Date: 20220113
  Receipt Date: 20220113
  Transmission Date: 20220423
  Serious: Yes (Other)
  Sender: FDA-Public Use
  Company Number: JP-ASTELLAS-2021JP023677

PATIENT
  Age: 10 Year
  Sex: Female

DRUGS (11)
  1. PROGRAF [Suspect]
     Active Substance: TACROLIMUS
     Indication: Sjogren^s syndrome
     Dosage: 3 MG/DAY, UNKNOWN FREQ.
     Route: 048
     Dates: start: 20210222
  2. PROGRAF [Suspect]
     Active Substance: TACROLIMUS
     Indication: Mixed connective tissue disease
  3. PROGRAF [Suspect]
     Active Substance: TACROLIMUS
     Indication: Overlap syndrome
  4. PREDNISOLONE [Concomitant]
     Active Substance: PREDNISOLONE
     Indication: Sjogren^s syndrome
     Dosage: 0.5 MG/KG/DAY, UNKNOWN FREQ.
     Route: 042
     Dates: start: 202101, end: 202102
  5. PREDNISOLONE [Concomitant]
     Active Substance: PREDNISOLONE
     Indication: Mixed connective tissue disease
     Dosage: UNK UNK, UNKNOWN FREQ.
     Route: 042
     Dates: start: 202102
  6. PREDNISOLONE [Concomitant]
     Active Substance: PREDNISOLONE
     Indication: Overlap syndrome
  7. MYCOPHENOLATE MOFETIL [Concomitant]
     Active Substance: MYCOPHENOLATE MOFETIL
     Indication: Sjogren^s syndrome
     Dosage: UNK UNK, UNKNOWN FREQ.
     Route: 048
     Dates: start: 202101, end: 202102
  8. MYCOPHENOLATE MOFETIL [Concomitant]
     Active Substance: MYCOPHENOLATE MOFETIL
     Indication: Mixed connective tissue disease
     Dosage: UNK UNK, UNKNOWN FREQ.
     Route: 048
     Dates: start: 202102
  9. MYCOPHENOLATE MOFETIL [Concomitant]
     Active Substance: MYCOPHENOLATE MOFETIL
     Indication: Overlap syndrome
  10. CYCLOPHOSPHAMIDE [Concomitant]
     Active Substance: CYCLOPHOSPHAMIDE
     Indication: Product used for unknown indication
     Dosage: UNK UNK, UNKNOWN FREQ.
     Route: 042
     Dates: start: 202103
  11. HYDROXYCHLOROQUINE SULFATE [Concomitant]
     Active Substance: HYDROXYCHLOROQUINE SULFATE
     Indication: Product used for unknown indication
     Dosage: UNK UNK, UNKNOWN FREQ.
     Route: 048
     Dates: start: 202103

REACTIONS (4)
  - Neuropsychiatric lupus [Recovering/Resolving]
  - Reversible cerebral vasoconstriction syndrome [Recovering/Resolving]
  - Seizure [Recovering/Resolving]
  - Off label use [Unknown]

NARRATIVE: CASE EVENT DATE: 20210222
